FAERS Safety Report 7492078-6 (Version None)
Quarter: 2011Q2

REPORT INFORMATION
  Report Type: 
  Country: None (occurrence: None)
  Receive Date: 20110519
  Receipt Date: 20110512
  Transmission Date: 20111010
  Serious: Yes (Congenital Anomaly, Other)
  Sender: FDA-Public Use
  Company Number: GB-TEVA-282213ISR

PATIENT
  Sex: Male
  Weight: 3.8 kg

DRUGS (1)
  1. CITALOPRAM [Suspect]
     Indication: DEPRESSION
     Route: 064

REACTIONS (9)
  - ARACHNOID CYST [None]
  - OPTIC NERVE HYPOPLASIA [None]
  - CLEFT PALATE [None]
  - MULTIPLE CONGENITAL ABNORMALITIES [None]
  - ABNORMAL PALMAR/PLANTAR CREASES [None]
  - CONGENITAL CENTRAL NERVOUS SYSTEM ANOMALY [None]
  - PILONIDAL CYST CONGENITAL [None]
  - HYPERTELORISM OF ORBIT [None]
  - HYPOTONIA [None]
